FAERS Safety Report 9887523 (Version 1)
Quarter: 2014Q1

REPORT INFORMATION
  Report Type: Spontaneous
  Country: US (occurrence: US)
  Receive Date: 20140211
  Receipt Date: 20140211
  Transmission Date: 20141002
  Serious: No
  Sender: FDA-Public Use
  Company Number: US-BAYER-2014-008162

PATIENT
  Age: 40 Year
  Sex: Male

DRUGS (1)
  1. HELIXATE FS [Suspect]

REACTIONS (2)
  - Muscle spasms [Unknown]
  - Joint swelling [Unknown]
